FAERS Safety Report 21546637 (Version 5)
Quarter: 2023Q2

REPORT INFORMATION
  Report Type: Report from Study
  Country: US (occurrence: US)
  Receive Date: 20221103
  Receipt Date: 20230402
  Transmission Date: 20230721
  Serious: No
  Sender: FDA-Public Use
  Company Number: US-002147023-NVSC2022US247071

PATIENT
  Sex: Male

DRUGS (1)
  1. ENTRESTO [Suspect]
     Active Substance: SACUBITRIL\VALSARTAN
     Indication: Product used for unknown indication
     Dosage: UNK
     Route: 048
     Dates: start: 202210

REACTIONS (5)
  - Weight fluctuation [Unknown]
  - Memory impairment [Not Recovered/Not Resolved]
  - Stress [Unknown]
  - Hypotension [Unknown]
  - Dizziness [Unknown]
